FAERS Safety Report 19642154 (Version 4)
Quarter: 2021Q3

REPORT INFORMATION
  Report Type: Report from Study
  Country: JP (occurrence: JP)
  Receive Date: 20210730
  Receipt Date: 20210927
  Transmission Date: 20211014
  Serious: Yes (Hospitalization, Other)
  Sender: FDA-Public Use
  Company Number: JP-BRISTOL-MYERS SQUIBB COMPANY-BMS-2021-074004

PATIENT
  Age: 44 Year
  Sex: Female
  Weight: 69.4 kg

DRUGS (19)
  1. AZILVA [Concomitant]
     Active Substance: AZILSARTAN KAMEDOXOMIL
     Indication: HYPERTENSION
     Dosage: 20 MILLIGRAM, QD
     Route: 048
     Dates: start: 20210519
  2. FENTOS [Concomitant]
     Active Substance: FENTANYL
     Indication: TUMOUR PAIN
     Dosage: TAPE (INCLUDING POULTICE)  1 DF, EVERYDAY
     Route: 062
     Dates: start: 20210728
  3. NIVOLUMAB [Suspect]
     Active Substance: NIVOLUMAB
     Indication: GASTRIC CANCER
     Dosage: 360 MILLIGRAM, Q3WK
     Route: 041
     Dates: start: 20210701
  4. VOLTAREN [Concomitant]
     Active Substance: DICLOFENAC SODIUM
     Indication: TUMOUR PAIN
     Dosage: 25 MILLIGRAM, PRN
     Route: 054
     Dates: start: 20210519
  5. CALONAL [Concomitant]
     Active Substance: ACETAMINOPHEN
     Indication: TUMOUR PAIN
     Dosage: 500 MILLIGRAM, Q6H
     Route: 048
     Dates: start: 20210602
  6. MAGMITT [Concomitant]
     Active Substance: MAGNESIUM OXIDE
     Indication: CONSTIPATION
     Dosage: 220 MILLIGRAM, Q8H
     Route: 048
     Dates: start: 2021
  7. URSO [Concomitant]
     Active Substance: URSODIOL
     Indication: LIVER DISORDER
     Dosage: 100 MILLIGRAM, Q8H
     Route: 048
     Dates: start: 20210707
  8. OXINORM [Concomitant]
     Indication: TUMOUR PAIN
     Dosage: 2.5 MILLIGRAM, PRN
     Route: 048
     Dates: start: 20210622, end: 20210728
  9. TAKECAB [Concomitant]
     Active Substance: VONOPRAZAN FUMARATE
     Indication: GASTRITIS PROPHYLAXIS
     Dosage: 20 MILLIGRAM, QD
     Route: 048
     Dates: start: 20210407
  10. DALACIN T [Concomitant]
     Active Substance: CLINDAMYCIN PHOSPHATE
     Indication: FOLLICULITIS
     Dosage: ADEQUATE DOSE, PRN
     Route: 061
     Dates: start: 20210311
  11. MAINTATE [Concomitant]
     Active Substance: BISOPROLOL FUMARATE
     Indication: CARDIOVASCULAR EVENT PROPHYLAXIS
     Dosage: 0.625 MG, EVERYDAY  TABLET
     Route: 048
     Dates: start: 20210805
  12. AZUNOL GARGLE LIQUID [Concomitant]
     Active Substance: SODIUM GUALENATE MONOHYDRATE
     Indication: STOMATITIS
     Dosage: ADEQUATE DOSE, PRN
     Route: 002
     Dates: start: 20210331
  13. THYRADIN [Concomitant]
     Active Substance: LEVOTHYROXINE
     Indication: HYPOTHYROIDISM
     Dosage: 100 UG, EVERYDAY TABLET
     Route: 048
     Dates: start: 20210818
  14. LOXOPROFEN [Concomitant]
     Active Substance: LOXOPROFEN
     Indication: TUMOUR PAIN
     Dosage: 60 MILLIGRAM, Q8H
     Route: 048
     Dates: start: 2020
  15. NOVAMIN [Concomitant]
     Indication: PROPHYLAXIS OF NAUSEA AND VOMITING
     Dosage: 5 MILLIGRAM, Q8H
     Route: 048
     Dates: start: 20210707
  16. ERIBULIN MESILATE [Concomitant]
     Active Substance: ERIBULIN
     Indication: GASTRIC CANCER
     Dosage: 2.1 MILLIGRAM/SQ. METER, Q3WK CUMULATIVE DOSE TO FIRST REACTION (NUMBER) = 3.15 MILLIGRAM/SQUARE MET
     Route: 042
     Dates: start: 20210701, end: 20210811
  17. E7389?LF [Suspect]
     Active Substance: ERIBULIN MESYLATE
     Indication: GASTRIC CANCER
     Dosage: 1 MILLIGRAM/SQ. METER
     Route: 065
     Dates: start: 20210701
  18. OXYCONTIN TR [Concomitant]
     Active Substance: OXYCODONE HYDROCHLORIDE
     Indication: TUMOUR PAIN
     Dosage: 5 MILLIGRAM, Q12H
     Route: 048
     Dates: start: 20210630, end: 20210728
  19. ZOLPIDEM TARTRATE OD [Concomitant]
     Active Substance: ZOLPIDEM TARTRATE
     Indication: INSOMNIA
     Dosage: 1 DOSAGE FORM, QD
     Route: 048
     Dates: start: 20201225

REACTIONS (3)
  - Hyperthyroidism [Unknown]
  - Cardiac failure [Recovered/Resolved]
  - Pulmonary oedema [Not Recovered/Not Resolved]

NARRATIVE: CASE EVENT DATE: 20210720
